FAERS Safety Report 4422923-X (Version None)
Quarter: 2004Q3

REPORT INFORMATION
  Report Type: 
  Country: None (occurrence: None)
  Receive Date: 20040806
  Receipt Date: 20040727
  Transmission Date: 20050211
  Serious: Yes (Death, Hospitalization)
  Sender: FDA-Public Use
  Company Number: US-JNJFOC-20040404489

PATIENT
  Age: 57 Year
  Sex: Male
  Weight: 65.7716 kg

DRUGS (6)
  1. DURAGESIC [Suspect]
     Indication: PAIN
     Dosage: SEE IMAGE
     Route: 062
     Dates: start: 20010614, end: 20010810
  2. DURAGESIC [Suspect]
     Indication: PAIN
     Dosage: SEE IMAGE
     Route: 062
     Dates: start: 20010810, end: 20011115
  3. DURAGESIC [Suspect]
     Indication: PAIN
     Dosage: SEE IMAGE
     Route: 062
     Dates: start: 20011115, end: 20031121
  4. DURAGESIC [Suspect]
     Indication: PAIN
     Dosage: SEE IMAGE
     Route: 062
     Dates: start: 20031121
  5. NORCO (VICODIN) [Concomitant]
  6. ORUDIS [Concomitant]

REACTIONS (37)
  - ACUTE RESPIRATORY FAILURE [None]
  - AGITATION [None]
  - BLOOD GLUCOSE INCREASED [None]
  - BLOOD PH INCREASED [None]
  - BLOOD PRESSURE DIASTOLIC DECREASED [None]
  - BLOOD SODIUM DECREASED [None]
  - BODY TEMPERATURE DECREASED [None]
  - CHRONIC OBSTRUCTIVE AIRWAYS DISEASE [None]
  - CONFUSIONAL STATE [None]
  - ELECTROCARDIOGRAM ST-T SEGMENT ABNORMAL [None]
  - EMPHYSEMA [None]
  - HEADACHE [None]
  - HEART RATE INCREASED [None]
  - INTENTIONAL SELF-INJURY [None]
  - INTERNATIONAL NORMALISED RATIO DECREASED [None]
  - INTERVERTEBRAL DISC DEGENERATION [None]
  - INTERVERTEBRAL DISC PROTRUSION [None]
  - LETHARGY [None]
  - METASTASES TO ADRENALS [None]
  - METASTASES TO CENTRAL NERVOUS SYSTEM [None]
  - METASTASES TO LUNG [None]
  - MUSCULOSKELETAL STIFFNESS [None]
  - NAUSEA [None]
  - PHONOPHOBIA [None]
  - PHOTOPHOBIA [None]
  - PO2 INCREASED [None]
  - REFUSAL OF TREATMENT BY PATIENT [None]
  - RESPIRATORY DISTRESS [None]
  - RESPIRATORY RATE INCREASED [None]
  - SINUS TACHYCARDIA [None]
  - SMALL CELL LUNG CANCER STAGE UNSPECIFIED [None]
  - SPONDYLOSIS [None]
  - SUBARACHNOID HAEMORRHAGE [None]
  - TENDERNESS [None]
  - THERAPY NON-RESPONDER [None]
  - TREATMENT NONCOMPLIANCE [None]
  - URINARY TRACT INFECTION STAPHYLOCOCCAL [None]
